FAERS Safety Report 25007771 (Version 1)
Quarter: 2025Q1

REPORT INFORMATION
  Report Type: Spontaneous
  Country: US (occurrence: US)
  Receive Date: 20250225
  Receipt Date: 20250225
  Transmission Date: 20250409
  Serious: Yes (Other)
  Sender: NOVO NORDISK
  Company Number: US-NOVOPROD-1373306

PATIENT
  Sex: Male

DRUGS (1)
  1. OZEMPIC [Suspect]
     Active Substance: SEMAGLUTIDE
     Indication: Product used for unknown indication

REACTIONS (4)
  - Shoulder arthroplasty [Recovered/Resolved]
  - Cardiac operation [Recovered/Resolved]
  - Limb reconstructive surgery [Recovered/Resolved]
  - Weight increased [Not Recovered/Not Resolved]
